FAERS Safety Report 20645746 (Version 3)
Quarter: 2022Q2

REPORT INFORMATION
  Report Type: Spontaneous
  Country: US (occurrence: None)
  Receive Date: 20220328
  Receipt Date: 20220405
  Transmission Date: 20220720
  Serious: No
  Sender: FDA-Public Use
  Company Number: 2022A111000

PATIENT
  Age: 68 Year
  Sex: Female
  Weight: 99.8 kg

DRUGS (4)
  1. BYDUREON BCISE [Suspect]
     Active Substance: EXENATIDE
     Indication: Diabetes mellitus
     Route: 058
     Dates: start: 2021
  2. COUMADIN [Concomitant]
     Active Substance: WARFARIN SODIUM
     Dosage: UNKNOWN
     Route: 065
  3. LANTUS [Concomitant]
     Active Substance: INSULIN GLARGINE
     Dosage: UNKNOWN
     Route: 065
  4. PLASMA INFUSIONS [Concomitant]
     Dosage: UNKNOWN
     Route: 065

REACTIONS (5)
  - Haematoma [Recovering/Resolving]
  - Injection site bruising [Not Recovered/Not Resolved]
  - Injection site erythema [Unknown]
  - Injection site discomfort [Unknown]
  - Wrong technique in device usage process [Unknown]

NARRATIVE: CASE EVENT DATE: 20210101
